FAERS Safety Report 13614552 (Version 2)
Quarter: 2017Q2

REPORT INFORMATION
  Report Type: Report from Study
  Country: US (occurrence: US)
  Receive Date: 20170606
  Receipt Date: 20170611
  Transmission Date: 20170830
  Serious: Yes (Death, Other)
  Sender: FDA-Public Use
  Company Number: US-ROCHE-1942635

PATIENT

DRUGS (1)
  1. BEVACIZUMAB [Suspect]
     Active Substance: BEVACIZUMAB
     Indication: RETINAL VEIN OCCLUSION
     Dosage: FOR 6 MONTHS
     Route: 050

REACTIONS (5)
  - Endophthalmitis [Unknown]
  - Death [Fatal]
  - Acute myocardial infarction [Unknown]
  - Intraocular pressure increased [Unknown]
  - Myocardial infarction [Unknown]
